FAERS Safety Report 5276026-5 (Version None)
Quarter: 2007Q1

REPORT INFORMATION
  Report Type: 
  Country: None (occurrence: None)
  Receive Date: 20061213
  Receipt Date: 20050926
  Transmission Date: 20070707
  Serious: No
  Sender: FDA-Public Use
  Company Number: 2005UW14433

PATIENT
  Sex: Male
  Weight: 81.646 kg

DRUGS (3)
  1. SEROQUEL [Suspect]
     Indication: AFFECTIVE DISORDER
  2. SEROQUEL [Suspect]
     Indication: BIPOLAR DISORDER
  3. TRILEPTAL [Concomitant]

REACTIONS (2)
  - NEUROLEPTIC MALIGNANT SYNDROME [None]
  - WEIGHT DECREASED [None]
